FAERS Safety Report 8169765-X (Version None)
Quarter: 2012Q1

REPORT INFORMATION
  Report Type: 
  Country: None (occurrence: None)
  Receive Date: 20120228
  Receipt Date: 20120216
  Transmission Date: 20120608
  Serious: Yes (Hospitalization)
  Sender: FDA-Public Use
  Company Number: DK-JNJFOC-20120212896

PATIENT
  Age: 65 Year
  Sex: Male

DRUGS (6)
  1. PRAMIPEXOLE DIHYDROCHLORIDE [Concomitant]
     Indication: MUSCLE SPASMS
     Route: 048
  2. EFFEXOR [Suspect]
     Indication: BLOOD PRESSURE
     Route: 048
  3. DOLTARD [Concomitant]
     Indication: PAIN
     Route: 048
  4. CARDURA [Concomitant]
     Indication: BLOOD PRESSURE
     Route: 048
  5. LOSARTAN POTASSIUM AND HYDROCHLOROTHIAZIDE [Concomitant]
     Indication: BLOOD PRESSURE
     Route: 048
  6. PALEXIA DEPOT [Suspect]
     Indication: PAIN
     Route: 048

REACTIONS (2)
  - CONSTIPATION [None]
  - CEREBRAL HAEMORRHAGE [None]
